FAERS Safety Report 6032098-1 (Version None)
Quarter: 2009Q1

REPORT INFORMATION
  Report Type: 
  Country: None (occurrence: None)
  Receive Date: 20090108
  Receipt Date: 20090106
  Transmission Date: 20090719
  Serious: Yes (Hospitalization, Other)
  Sender: FDA-Public Use
  Company Number: US-ASTRAZENECA-2008UW21666

PATIENT
  Age: 50 Year
  Sex: Female
  Weight: 175.1 kg

DRUGS (32)
  1. SEROQUEL [Suspect]
     Indication: SCHIZOAFFECTIVE DISORDER
     Route: 048
  2. RISPERDAL [Suspect]
     Indication: SCHIZOAFFECTIVE DISORDER
     Route: 048
  3. GLYBURIDE [Concomitant]
     Route: 048
     Dates: start: 20080901
  4. EFFEXOR XR [Concomitant]
     Indication: DEPRESSION
     Route: 048
  5. NAMENDA [Concomitant]
     Indication: MEMORY IMPAIRMENT
     Route: 048
     Dates: start: 20061218
  6. HYDROCODONE [Concomitant]
     Indication: PAIN
     Route: 048
  7. TOPAMAX [Concomitant]
     Indication: PAIN
     Route: 048
     Dates: start: 20070216
  8. RAMIPRIL [Concomitant]
     Indication: HYPERTENSION
     Route: 048
     Dates: start: 20050701
  9. LYRICA [Concomitant]
     Indication: PAIN
     Dates: start: 20070216
  10. FUROSEMIDE [Concomitant]
     Indication: HYPERTENSION
     Route: 048
  11. FUROSEMIDE [Concomitant]
     Indication: OEDEMA
     Route: 048
  12. ESTRADIOL [Concomitant]
     Indication: MENOPAUSE
     Route: 048
     Dates: start: 20060824
  13. AXERT [Concomitant]
     Route: 048
  14. MIRAPEX [Concomitant]
     Indication: RESTLESS LEGS SYNDROME
     Route: 048
     Dates: start: 20070216
  15. BACLOFEN [Concomitant]
     Indication: MUSCLE SPASMS
     Route: 048
     Dates: start: 20070921
  16. NEXIUM [Concomitant]
     Indication: GASTROOESOPHAGEAL REFLUX DISEASE
     Route: 048
     Dates: start: 20060913
  17. SPIRIVA [Concomitant]
     Indication: CHRONIC OBSTRUCTIVE PULMONARY DISEASE
     Route: 055
     Dates: start: 20060824
  18. RISPERDAL [Concomitant]
     Dosage: ONE AM, ONE NOON, TWO AT BEDTIME
  19. FERROUS SULFATE TAB [Concomitant]
     Route: 048
  20. COLACE [Concomitant]
     Route: 048
  21. CLARITIN [Concomitant]
     Route: 048
  22. SENOKOT [Concomitant]
     Dosage: 50 MG 8.6 TABLET 2 TABS
  23. ALBUTEROL [Concomitant]
     Indication: ASTHMA
     Route: 055
  24. PATANOL [Concomitant]
     Route: 047
  25. CARTIA XT [Concomitant]
     Indication: HYPERTENSION
     Route: 048
     Dates: start: 20070307
  26. SYMBICORT [Concomitant]
     Indication: ASTHMA
     Dosage: 160 MCG/4.5 MCG/IH    2 PUFFS
     Route: 055
  27. CELEBREX [Concomitant]
     Route: 048
  28. LIDODERM [Concomitant]
     Route: 061
  29. LISINOPRIL [Concomitant]
     Route: 048
  30. OMEPRAZOLE [Concomitant]
     Route: 048
  31. MORPHINE [Concomitant]
     Indication: PAIN
     Route: 048
     Dates: start: 20070307
  32. IBUPROFEN TABLETS [Concomitant]
     Route: 048

REACTIONS (3)
  - DIABETES MELLITUS [None]
  - HYPERGLYCAEMIA [None]
  - RESPIRATORY DEPRESSION [None]
